FAERS Safety Report 6165481-4 (Version None)
Quarter: 2009Q2

REPORT INFORMATION
  Report Type: 
  Country: None (occurrence: None)
  Receive Date: 20090423
  Receipt Date: 20090421
  Transmission Date: 20091009
  Serious: Yes (Other)
  Sender: FDA-Public Use
  Company Number: FR-BRISTOL-MYERS SQUIBB COMPANY-14596928

PATIENT
  Age: 72 Year
  Sex: Male

DRUGS (1)
  1. APROVEL FILM-COATED TABS 300 MG [Suspect]
     Route: 048

REACTIONS (1)
  - BREAST CANCER [None]
